FAERS Safety Report 13899692 (Version 4)
Quarter: 2018Q1

REPORT INFORMATION
  Report Type: Report from Study
  Country: CO (occurrence: CO)
  Receive Date: 20170824
  Receipt Date: 20180115
  Transmission Date: 20180508
  Serious: Yes (Death, Other)
  Sender: FDA-Public Use
  Company Number: CO-ASTELLAS-2017US029674

PATIENT
  Age: 84 Year
  Sex: Male
  Weight: 52 kg

DRUGS (3)
  1. ENZALUTAMIDE [Suspect]
     Active Substance: ENZALUTAMIDE
     Indication: HORMONE-REFRACTORY PROSTATE CANCER
     Route: 048
     Dates: start: 20170716, end: 20170820
  2. NAPROXEN. [Concomitant]
     Active Substance: NAPROXEN
     Indication: PAIN MANAGEMENT
     Route: 048
     Dates: start: 20110724
  3. OMEPRAZOLE. [Concomitant]
     Active Substance: OMEPRAZOLE
     Indication: GASTROOESOPHAGEAL REFLUX DISEASE
     Route: 048

REACTIONS (12)
  - Transfusion [Unknown]
  - Pain in extremity [Unknown]
  - Crying [Not Recovered/Not Resolved]
  - Nausea [Recovering/Resolving]
  - Anaemia [Not Recovered/Not Resolved]
  - Death [Fatal]
  - Arthralgia [Not Recovered/Not Resolved]
  - Drug dose omission [Unknown]
  - Product supply issue [Unknown]
  - Depression [Not Recovered/Not Resolved]
  - Malaise [Unknown]
  - Decreased appetite [Not Recovered/Not Resolved]

NARRATIVE: CASE EVENT DATE: 20170717
